FAERS Safety Report 5415981-7 (Version None)
Quarter: 2007Q3

REPORT INFORMATION
  Report Type: 
  Country: None (occurrence: None)
  Receive Date: 20070815
  Receipt Date: 20070803
  Transmission Date: 20080115
  Serious: Yes (Hospitalization)
  Sender: FDA-Public Use
  Company Number: BR-GILEAD-2007-0012980

PATIENT
  Sex: Female
  Weight: 58.5 kg

DRUGS (4)
  1. TENOFOVIR DISOPROXIL FUMARATE [Suspect]
     Indication: HIV INFECTION
     Route: 048
     Dates: start: 20070720, end: 20070802
  2. COMBIVIR [Concomitant]
     Indication: HIV INFECTION
     Dates: start: 20070620, end: 20070802
  3. LOPINAVIR AND RITONAVIR [Concomitant]
     Indication: HIV INFECTION
     Dates: start: 20070620, end: 20070802
  4. AMOXACILIN/CLAVULANIC ACID [Concomitant]
     Indication: TONSILLITIS
     Dates: start: 20070718, end: 20070724

REACTIONS (1)
  - GLOMERULONEPHRITIS [None]
